FAERS Safety Report 5924722-6 (Version None)
Quarter: 2008Q4

REPORT INFORMATION
  Report Type: 
  Country: None (occurrence: None)
  Receive Date: 20081016
  Receipt Date: 20080930
  Transmission Date: 20090506
  Serious: Yes (Other)
  Sender: FDA-Public Use
  Company Number: 2008US002628

PATIENT
  Age: 60 Year
  Sex: Male

DRUGS (1)
  1. LEXISCAN [Suspect]
     Indication: SCAN MYOCARDIAL PERFUSION
     Dates: start: 20080826, end: 20080826

REACTIONS (4)
  - ABDOMINAL PAIN [None]
  - DYSPNOEA [None]
  - FLUSHING [None]
  - HEART RATE INCREASED [None]
